FAERS Safety Report 5879028-0 (Version None)
Quarter: 2008Q3

REPORT INFORMATION
  Report Type: 
  Country: None (occurrence: None)
  Receive Date: 20080912
  Receipt Date: 20080905
  Transmission Date: 20090109
  Serious: Yes (Other)
  Sender: FDA-Public Use
  Company Number: PHHY2008SE20480

PATIENT
  Age: 18 Year
  Sex: Male

DRUGS (1)
  1. RITALIN [Suspect]
     Dosage: 20 MG/DAY

REACTIONS (3)
  - FLAT AFFECT [None]
  - HYPOKINESIA [None]
  - MENTAL IMPAIRMENT [None]
